FAERS Safety Report 4361466-9 (Version None)
Quarter: 2004Q2

REPORT INFORMATION
  Report Type: 
  Country: None (occurrence: None)
  Receive Date: 20040521
  Receipt Date: 20030801
  Transmission Date: 20050107
  Serious: No
  Sender: FDA-Public Use
  Company Number: US-GLAXOSMITHKLINE-A0419928A

PATIENT
  Age: 43 Year
  Sex: Female

DRUGS (6)
  1. ZYBAN [Suspect]
     Dosage: 150MG TWICE PER DAY
     Route: 048
     Dates: start: 20030728
  2. XANAX [Concomitant]
  3. VALIUM [Concomitant]
  4. AMBIEN [Concomitant]
  5. ORAL CONTRACEPTIVE [Concomitant]
  6. DALMANE [Concomitant]

REACTIONS (7)
  - ANOREXIA [None]
  - ANXIETY [None]
  - DISTURBANCE IN ATTENTION [None]
  - FEELING JITTERY [None]
  - INSOMNIA [None]
  - MENTAL IMPAIRMENT [None]
  - WEIGHT DECREASED [None]
